FAERS Safety Report 16751395 (Version 10)
Quarter: 2021Q2

REPORT INFORMATION
  Report Type: Spontaneous
  Country: GB (occurrence: GB)
  Receive Date: 20190828
  Receipt Date: 20210409
  Transmission Date: 20210716
  Serious: Yes (Hospitalization, Other)
  Sender: FDA-Public Use
  Company Number: GB-PFIZER INC-2019352988

PATIENT
  Age: 48 Year
  Sex: Female

DRUGS (1)
  1. FLUCONAZOLE. [Suspect]
     Active Substance: FLUCONAZOLE
     Indication: CANDIDA INFECTION
     Dosage: UNK (INTERMITTENT ORAL FLUCONAZOLE FROM 5 YEARS)
     Route: 048

REACTIONS (3)
  - Fixed eruption [Recovered/Resolved]
  - Dermatosis [Recovered/Resolved]
  - Type IV hypersensitivity reaction [Recovered/Resolved]
